FAERS Safety Report 16278515 (Version 2)
Quarter: 2019Q2

REPORT INFORMATION
  Report Type: Report from Study
  Country: US (occurrence: US)
  Receive Date: 20190506
  Receipt Date: 20190529
  Transmission Date: 20190711
  Serious: Yes (Hospitalization)
  Sender: FDA-Public Use
  Company Number: US-ACTELION-A-NJ2019-187302

PATIENT
  Age: 62 Year
  Sex: Female

DRUGS (12)
  1. VENLAFAXINE [Concomitant]
     Active Substance: VENLAFAXINE HYDROCHLORIDE
  2. MUPIROCIN. [Concomitant]
     Active Substance: MUPIROCIN
  3. OSPHENA [Concomitant]
     Active Substance: OSPEMIFENE
  4. LEVOTHYROXINE. [Concomitant]
     Active Substance: LEVOTHYROXINE
  5. NIFEDIPINE. [Concomitant]
     Active Substance: NIFEDIPINE
  6. DEXILANT [Concomitant]
     Active Substance: DEXLANSOPRAZOLE
  7. OPSUMIT [Suspect]
     Active Substance: MACITENTAN
     Indication: PULMONARY ARTERIAL HYPERTENSION
     Dosage: 10 MG, QD
     Route: 048
     Dates: start: 20190131
  8. PRASTERONE [Concomitant]
     Active Substance: PRASTERONE
  9. POTASSIUM CHLORIDE. [Concomitant]
     Active Substance: POTASSIUM CHLORIDE
  10. SILDENAFIL. [Concomitant]
     Active Substance: SILDENAFIL
  11. HYDRALAZINE [Concomitant]
     Active Substance: HYDRALAZINE HYDROCHLORIDE
  12. FUROSEMIDE. [Concomitant]
     Active Substance: FUROSEMIDE

REACTIONS (4)
  - Memory impairment [Unknown]
  - Transient ischaemic attack [Unknown]
  - Cerebrovascular accident [Unknown]
  - Product dose omission [Unknown]

NARRATIVE: CASE EVENT DATE: 20190227
